FAERS Safety Report 4579326-7 (Version None)
Quarter: 2005Q1

REPORT INFORMATION
  Report Type: 
  Country: None (occurrence: None)
  Receive Date: 20050209
  Receipt Date: 20050209
  Transmission Date: 20050727
  Serious: Yes (Hospitalization)
  Sender: FDA-Public Use
  Company Number: 2005BI002065

PATIENT
  Age: 45 Year
  Sex: Male

DRUGS (1)
  1. AVONEX [Suspect]
     Indication: MULTIPLE SCLEROSIS
     Dosage: 30 UG; QW; IM
     Route: 030
     Dates: start: 19980101, end: 19980201

REACTIONS (7)
  - BRAIN NEOPLASM BENIGN [None]
  - DIFFICULTY IN WALKING [None]
  - DYSGRAPHIA [None]
  - MEMORY IMPAIRMENT [None]
  - NERVOUSNESS [None]
  - VISUAL DISTURBANCE [None]
  - WEIGHT DECREASED [None]
